FAERS Safety Report 16039631 (Version 2)
Quarter: 2019Q1

REPORT INFORMATION
  Report Type: Report from Study
  Country: CA (occurrence: CA)
  Receive Date: 20190306
  Receipt Date: 20190313
  Transmission Date: 20190418
  Serious: No
  Sender: FDA-Public Use
  Company Number: CA-ROCHE-2177338

PATIENT
  Age: 40 Year
  Sex: Female

DRUGS (17)
  1. CLONAZEPAM. [Concomitant]
     Active Substance: CLONAZEPAM
  2. VITAMIN D3 [Concomitant]
     Active Substance: CHOLECALCIFEROL
  3. BACLOFEN. [Concomitant]
     Active Substance: BACLOFEN
  4. VITAMIN A [Concomitant]
     Active Substance: VITAMIN A
  5. SALAZINE [Concomitant]
     Active Substance: SULFASALAZINE
  6. CBD OIL [Concomitant]
     Active Substance: CANNABIDIOL\HERBALS
     Indication: NEURALGIA
  7. OCREVUS [Suspect]
     Active Substance: OCRELIZUMAB
     Indication: RELAPSING-REMITTING MULTIPLE SCLEROSIS
     Dosage: 300 MG IV DAY 0 AND DAY 14, 600 MG IV Q 6 MONTHS
     Route: 042
     Dates: start: 20180316
  8. ADDERALL [Concomitant]
     Active Substance: AMPHETAMINE ASPARTATE\AMPHETAMINE SULFATE\DEXTROAMPHETAMINE SACCHARATE\DEXTROAMPHETAMINE SULFATE
  9. VITAMIN C [Concomitant]
     Active Substance: ASCORBIC ACID
  10. AZITHROMYCIN ANHYDROUS. [Concomitant]
     Active Substance: AZITHROMYCIN ANHYDROUS
     Route: 065
     Dates: start: 20190223, end: 20190301
  11. OMEGA 3 [Concomitant]
     Active Substance: OMEGA-3 FATTY ACIDS
  12. ACYCLOVIR. [Concomitant]
     Active Substance: ACYCLOVIR
     Route: 065
  13. LORAZEPAM. [Concomitant]
     Active Substance: LORAZEPAM
  14. PROZAC [Concomitant]
     Active Substance: FLUOXETINE HYDROCHLORIDE
  15. HYDROCHLOROTHIAZIDE. [Concomitant]
     Active Substance: HYDROCHLOROTHIAZIDE
     Route: 065
  16. CINNAMON. [Concomitant]
     Active Substance: CINNAMON
  17. CLONIDINE. [Concomitant]
     Active Substance: CLONIDINE
     Route: 065

REACTIONS (6)
  - Lower respiratory tract infection [Not Recovered/Not Resolved]
  - Bronchitis [Unknown]
  - Cough [Recovering/Resolving]
  - Diarrhoea [Not Recovered/Not Resolved]
  - Insomnia [Not Recovered/Not Resolved]
  - Pyrexia [Not Recovered/Not Resolved]

NARRATIVE: CASE EVENT DATE: 20180913
